FAERS Safety Report 6097273-9 (Version None)
Quarter: 2009Q1

REPORT INFORMATION
  Report Type: 
  Country: None (occurrence: None)
  Receive Date: 20090226
  Receipt Date: 20090226
  Transmission Date: 20090719
  Serious: Yes (Life-Threatening, Hospitalization, Disabling, Other)
  Sender: FDA-Public Use
  Company Number: None

PATIENT
  Age: 38 Year
  Sex: Male
  Weight: 79.3795 kg

DRUGS (2)
  1. ADDERALL XR 5 [Suspect]
     Indication: ATTENTION DEFICIT/HYPERACTIVITY DISORDER
     Dosage: 5 MG X 4 2 X DAILY PO
     Route: 048
     Dates: start: 20090214, end: 20090225
  2. ADDERALL XR 5 [Suspect]
     Indication: DEPRESSION
     Dosage: 5 MG X 4 2 X DAILY PO
     Route: 048
     Dates: start: 20090214, end: 20090225

REACTIONS (12)
  - ABNORMAL BEHAVIOUR [None]
  - AGITATION [None]
  - CONVULSION [None]
  - DELIRIUM [None]
  - DEPRESSION [None]
  - DIZZINESS [None]
  - FEELING ABNORMAL [None]
  - HALLUCINATION [None]
  - HEADACHE [None]
  - NERVOUSNESS [None]
  - SPEECH DISORDER [None]
  - UNRESPONSIVE TO STIMULI [None]
